FAERS Safety Report 9142787 (Version 1)
Quarter: 2013Q1

REPORT INFORMATION
  Report Type: Spontaneous
  Country: CA (occurrence: CA)
  Receive Date: 20130306
  Receipt Date: 20130306
  Transmission Date: 20140127
  Serious: Yes (Other)
  Sender: FDA-Public Use
  Company Number: CA-TEVA-389951USA

PATIENT
  Age: 21 Year
  Sex: Female
  Weight: 66.74 kg

DRUGS (3)
  1. APRI [Suspect]
     Dosage: 1 DOSAGE FORMS DAILY;
     Route: 048
  2. ELTROXIN [Concomitant]
  3. TRAZODONE [Concomitant]

REACTIONS (1)
  - Vaginal haemorrhage [Recovered/Resolved]
